FAERS Safety Report 19977116 (Version 1)
Quarter: 2021Q4

REPORT INFORMATION
  Report Type: Spontaneous
  Country: US (occurrence: US)
  Receive Date: 20211021
  Receipt Date: 20211021
  Transmission Date: 20220303
  Serious: Yes (Other)
  Sender: FDA-Public Use
  Company Number: US-TEVA-2021-US-1965854

PATIENT
  Age: 62 Year
  Sex: Female

DRUGS (2)
  1. AUSTEDO [Suspect]
     Active Substance: DEUTETRABENAZINE
     Dosage: 24 MILLIGRAM DAILY;
     Route: 048
     Dates: start: 202110
  2. ZIPRASIDONE [Concomitant]
     Active Substance: ZIPRASIDONE

REACTIONS (1)
  - Electrocardiogram QT prolonged [Unknown]

NARRATIVE: CASE EVENT DATE: 20211011
